FAERS Safety Report 15545373 (Version 4)
Quarter: 2021Q1

REPORT INFORMATION
  Report Type: Spontaneous
  Country: JP (occurrence: JP)
  Receive Date: 20181024
  Receipt Date: 20210317
  Transmission Date: 20210419
  Serious: Yes (Hospitalization)
  Sender: FDA-Public Use
  Company Number: JP-REGENERON PHARMACEUTICALS, INC.-2018-41418

PATIENT

DRUGS (5)
  1. EYLEA [Suspect]
     Active Substance: AFLIBERCEPT
     Indication: DIABETIC RETINAL OEDEMA
     Dosage: 2 MG, ONCE, RIGHT EYE
     Route: 031
     Dates: start: 20170606, end: 20170606
  2. EYLEA [Suspect]
     Active Substance: AFLIBERCEPT
     Dosage: 2 MG, ONCE, LEFT EYE
     Route: 031
     Dates: start: 20171010, end: 20171010
  3. EYLEA [Suspect]
     Active Substance: AFLIBERCEPT
     Dosage: 2 MG, ONCE, LEFT EYE
     Route: 031
     Dates: start: 20170613, end: 20170613
  4. EYLEA [Suspect]
     Active Substance: AFLIBERCEPT
     Dosage: 2 MG, ONCE, RIGHT EYE
     Route: 031
     Dates: start: 20171003, end: 20171003
  5. XYLOCAINE OPHTHALMIC 4% [Concomitant]
     Indication: ANAESTHESIA PROCEDURE
     Dosage: UNK

REACTIONS (3)
  - Cerebral haemorrhage [Recovered/Resolved with Sequelae]
  - Visual field defect [Unknown]
  - Hypertensive cerebrovascular disease [Recovered/Resolved with Sequelae]

NARRATIVE: CASE EVENT DATE: 20171112
